FAERS Safety Report 8119345-7 (Version None)
Quarter: 2012Q1

REPORT INFORMATION
  Report Type: 
  Country: None (occurrence: None)
  Receive Date: 20120207
  Receipt Date: 20120128
  Transmission Date: 20120608
  Serious: Yes (Other)
  Sender: FDA-Public Use
  Company Number: TR-MPIJNJ-2012-00674

PATIENT

DRUGS (13)
  1. DEXAMETHASONE [Concomitant]
     Indication: MULTIPLE MYELOMA
     Dosage: 40 MG, UNK
  2. SODIUM ALGINATE W/SODIUM BICARBONATE [Concomitant]
  3. ACYCLOVIR [Concomitant]
     Dosage: 400 MG, UNK
  4. METHYLPREDNISOLONE [Concomitant]
  5. PERINDOPRIL [Concomitant]
  6. ACETYLSALICYLIC ACID SRT [Concomitant]
  7. VELCADE [Suspect]
     Indication: MULTIPLE MYELOMA
     Dosage: 1.3 MG/M2, UNK
  8. ESOMEPRAZOLE SODIUM [Concomitant]
  9. PENTAERYTHRITOL TETRANITRATE [Concomitant]
  10. METOPROLOL [Concomitant]
  11. MAGNESIUM ALGINATE [Concomitant]
  12. MEPROBAMATE [Concomitant]
  13. FELODIPINE [Concomitant]

REACTIONS (5)
  - PLEURAL EFFUSION [None]
  - POLYNEUROPATHY [None]
  - LUNG CONSOLIDATION [None]
  - CARDIOMEGALY [None]
  - CHEST PAIN [None]
